FAERS Safety Report 16290773 (Version 1)
Quarter: 2019Q2

REPORT INFORMATION
  Report Type: Spontaneous
  Country: US (occurrence: US)
  Receive Date: 20190404
  Receipt Date: 20190404
  Transmission Date: 20190711
  Serious: No
  Sender: FDA-Public Use
  Company Number: None

PATIENT
  Age: 49 Year
  Sex: Male

DRUGS (1)
  1. DIDANOSINE D/R CAP 400MG [Suspect]
     Active Substance: DIDANOSINE
     Dates: start: 2010, end: 201904

REACTIONS (1)
  - Viral load increased [None]

NARRATIVE: CASE EVENT DATE: 20190404
